FAERS Safety Report 5901343-2 (Version None)
Quarter: 2008Q3

REPORT INFORMATION
  Report Type: 
  Country: None (occurrence: None)
  Receive Date: 20080929
  Receipt Date: 20080923
  Transmission Date: 20090109
  Serious: Yes (Other)
  Sender: FDA-Public Use
  Company Number: US-BAYER-US-2006-006373

PATIENT
  Age: 64 Year
  Sex: Female
  Weight: 68 kg

DRUGS (33)
  1. CLIMARA [Suspect]
     Indication: MENOPAUSAL SYMPTOMS
     Route: 062
     Dates: start: 19951018, end: 19980101
  2. ESTRADERM [Suspect]
     Indication: MENOPAUSAL SYMPTOMS
     Dates: start: 19940101, end: 19950101
  3. PROVERA [Suspect]
     Indication: MENOPAUSAL SYMPTOMS
     Dates: start: 19880101, end: 20010101
  4. PREMPRO [Suspect]
     Indication: MENOPAUSAL SYMPTOMS
     Dates: start: 19980101, end: 20020101
  5. PREMARIN [Suspect]
     Indication: MENOPAUSAL SYMPTOMS
     Route: 048
     Dates: start: 19880101
  6. SYNTHROID [Concomitant]
     Indication: HYPOTHYROIDISM
     Dates: start: 19820101
  7. MORVAN [Concomitant]
     Indication: HYPERTENSION
     Dates: start: 19930101, end: 20020101
  8. CLONIDINE [Concomitant]
     Indication: HYPERTENSION
     Dates: start: 20020101, end: 20050101
  9. COZAAR [Concomitant]
     Indication: HYPERTENSION
     Dates: start: 20050101
  10. ASPIRIN [Concomitant]
     Indication: ANTICOAGULANT THERAPY
     Dates: start: 19930101
  11. HYDROCODONE BITARTRATE + ACETAMINOPHEN [Concomitant]
     Dates: start: 20020101
  12. WELLBUTRIN SR [Concomitant]
     Dates: start: 20020101
  13. ATROVENT [Concomitant]
     Dates: start: 20020101
  14. UNIVASC [Concomitant]
  15. ACULAR [Concomitant]
     Dates: start: 20020101
  16. PRED FORTE [Concomitant]
     Dates: start: 20020101
  17. FLONASE [Concomitant]
     Dates: start: 20010101
  18. LEVOXYL [Concomitant]
     Dates: start: 20010122
  19. PREDNISONE [Concomitant]
     Dosage: UNIT DOSE: 20 MG
     Dates: start: 20010101
  20. PREDNISONE [Concomitant]
     Dates: start: 20020101
  21. OCUFLOX [Concomitant]
     Dates: start: 20020101
  22. ALLEGRA [Concomitant]
     Dates: start: 20010122
  23. LEVAQUIN [Concomitant]
     Dates: start: 20020101
  24. ZOLOFT [Concomitant]
     Indication: DEPRESSION
     Route: 048
     Dates: start: 19940829
  25. DETROL LA [Concomitant]
  26. SOLU-MEDROL [Concomitant]
     Indication: PNEUMONIA
  27. TEQUIN [Concomitant]
     Indication: PNEUMONIA
     Route: 042
     Dates: start: 20010124
  28. LORATADINE [Concomitant]
     Dates: start: 20010122
  29. TAMIFLU [Concomitant]
     Indication: DYSPNOEA
     Dosage: UNIT DOSE: 75 MG
     Dates: start: 20010119
  30. DICLOFENAC [Concomitant]
     Indication: BACK PAIN
     Dosage: UNIT DOSE: 50 MG
  31. RANITIDINE [Concomitant]
     Indication: DYSPEPSIA
     Route: 048
     Dates: start: 20010122
  32. TESSALON [Concomitant]
     Indication: COUGH
     Route: 048
     Dates: start: 20010122
  33. COMBIVENT [Concomitant]
     Route: 045
     Dates: start: 20010101

REACTIONS (4)
  - BREAST CANCER FEMALE [None]
  - BREAST CYST [None]
  - MUSCULOSKELETAL DISCOMFORT [None]
  - POSTOPERATIVE WOUND COMPLICATION [None]
